FAERS Safety Report 8863276 (Version 2)
Quarter: 2013Q1

REPORT INFORMATION
  Report Type: Spontaneous
  Country: US (occurrence: US)
  Receive Date: 20121025
  Receipt Date: 20130122
  Transmission Date: 20140127
  Serious: Yes (Other)
  Sender: FDA-Public Use
  Company Number: US-BAYER-2012-110060

PATIENT
  Age: 32 Year
  Sex: Female

DRUGS (5)
  1. GIANVI [Suspect]
  2. YAZ [Suspect]
  3. BEYAZ [Suspect]
  4. FLUOXETINE HCL [Concomitant]
     Dosage: 20 MG, UNK
     Route: 048
  5. OXYCODONE [Concomitant]
     Route: 048

REACTIONS (1)
  - Deep vein thrombosis [None]
